FAERS Safety Report 9495806 (Version 1)
Quarter: 2013Q3

REPORT INFORMATION
  Report Type: Spontaneous
  Country: US (occurrence: US)
  Receive Date: 20130903
  Receipt Date: 20130903
  Transmission Date: 20140515
  Serious: Yes (Hospitalization)
  Sender: FDA-Public Use
  Company Number: US-B.I. PHARMACEUTICALS,INC./RIDGEFIELD-2013-BI-26779BP

PATIENT
  Sex: Male
  Weight: 91 kg

DRUGS (3)
  1. SPIRIVA [Suspect]
     Indication: CHRONIC OBSTRUCTIVE PULMONARY DISEASE
     Dosage: 18 MCG
     Route: 048
     Dates: start: 2010
  2. SPIRIVA [Suspect]
     Dosage: 18 MCG
     Route: 055
     Dates: start: 2010
  3. ADVAIR [Concomitant]
     Indication: LUNG NEOPLASM MALIGNANT
     Dosage: (INHALATION AEROSOL) STRENGTH: 250 MCG / 50 MCG; DAILY DOSE: 500 MCG / 100 MCG
     Route: 055
     Dates: start: 201303

REACTIONS (3)
  - Lung neoplasm malignant [Not Recovered/Not Resolved]
  - Cough [Recovered/Resolved]
  - Incorrect route of drug administration [Recovered/Resolved]
